FAERS Safety Report 17027522 (Version 1)
Quarter: 2019Q4

REPORT INFORMATION
  Report Type: Spontaneous
  Country: IT (occurrence: IT)
  Receive Date: 20191113
  Receipt Date: 20191113
  Transmission Date: 20200122
  Serious: Yes (Hospitalization, Other)
  Sender: FDA-Public Use
  Company Number: IT-ALLERGAN-1940940US

PATIENT
  Sex: Male

DRUGS (9)
  1. LUVION [Concomitant]
  2. MEROPENEM AUROBINDO [Suspect]
     Active Substance: MEROPENEM
     Indication: ABDOMINAL ABSCESS
     Dosage: 3 DF, QD
     Route: 042
     Dates: start: 20190913
  3. METADONE CLORHIDRATIO MOLTENI [Concomitant]
  4. CEFTAROLINE FOSAMIL - BP [Suspect]
     Active Substance: CEFTAROLINE FOSAMIL
     Indication: SEPSIS
     Dosage: 2 DF, QD
     Route: 042
     Dates: start: 20190913
  5. CONTRAMAL [Concomitant]
     Active Substance: TRAMADOL HYDROCHLORIDE
  6. CUBICIN [Suspect]
     Active Substance: DAPTOMYCIN
     Indication: ENDOCARDITIS
     Dosage: 1 DF, QD
     Route: 042
     Dates: start: 20190913
  7. RANITIDINA HEXAL [Concomitant]
     Active Substance: RANITIDINE HYDROCHLORIDE
  8. DIFLUCAN [Suspect]
     Active Substance: FLUCONAZOLE
     Indication: CANDIDA INFECTION
     Dosage: 1 DF, QD
     Route: 048
     Dates: start: 20190913
  9. LASIX [Concomitant]
     Active Substance: FUROSEMIDE

REACTIONS (4)
  - Off label use [Unknown]
  - Azotaemia [Unknown]
  - Product use issue [Unknown]
  - Renal failure [Recovering/Resolving]

NARRATIVE: CASE EVENT DATE: 20190916
